FAERS Safety Report 9433151 (Version 2)
Quarter: 2013Q3

REPORT INFORMATION
  Report Type: Report from Study
  Country: US (occurrence: US)
  Receive Date: 20130731
  Receipt Date: 20130808
  Transmission Date: 20140515
  Serious: Yes (Death, Hospitalization, Congenital Anomaly, Other)
  Sender: FDA-Public Use
  Company Number: US-VIIV HEALTHCARE LIMITED-A1035083A

PATIENT
  Age: 0 Year
  Sex: Male
  Weight: 1.9 kg

DRUGS (5)
  1. RETROVIR [Suspect]
     Indication: ANTIRETROVIRAL THERAPY
     Route: 064
     Dates: start: 20130718, end: 20130718
  2. NORVIR [Suspect]
     Indication: ANTIRETROVIRAL THERAPY
     Dosage: 100MG PER DAY
     Route: 064
  3. REYATAZ [Suspect]
     Indication: ANTIRETROVIRAL THERAPY
     Dosage: 300MG PER DAY
     Route: 064
  4. TRUVADA [Suspect]
     Indication: ANTIRETROVIRAL THERAPY
     Dosage: 1TAB PER DAY
     Route: 064
  5. LEVOTHROID [Concomitant]
     Indication: HYPERTHYROIDISM
     Route: 064

REACTIONS (22)
  - Trisomy 18 [Unknown]
  - Limb malformation [Unknown]
  - Cleft lip [Unknown]
  - Cleft palate [Unknown]
  - Anal atresia [Unknown]
  - Ventricular septal defect [Unknown]
  - Patent ductus arteriosus [Unknown]
  - Ear malformation [Unknown]
  - Syndactyly [Unknown]
  - Congenital aplastic anaemia [Unknown]
  - VACTERL syndrome [Unknown]
  - Finger deformity [Unknown]
  - Atrial septal defect [Unknown]
  - Death neonatal [Fatal]
  - Mitral valve disease [Unknown]
  - Tricuspid valve disease [Unknown]
  - Aortic valve disease [Unknown]
  - Aortic valve incompetence [Unknown]
  - Cardiac disorder [Unknown]
  - Arterial disorder [Unknown]
  - Cardiac disorder [Unknown]
  - Foetal exposure during pregnancy [Unknown]
